FAERS Safety Report 13872528 (Version 2)
Quarter: 2017Q3

REPORT INFORMATION
  Report Type: Spontaneous
  Country: US (occurrence: US)
  Receive Date: 20170816
  Receipt Date: 20170818
  Transmission Date: 20171127
  Serious: No
  Sender: FDA-Public Use
  Company Number: US-PFIZER INC-2016540679

PATIENT
  Age: 38 Year
  Sex: Female

DRUGS (31)
  1. IBUPROFEN. [Concomitant]
     Active Substance: IBUPROFEN
     Dosage: 800 MG, AS NEEDED (ONE TABLET EVERY 4 HOURS AS NEEDED)
  2. SUMATRIPTAN SUCCINATE. [Concomitant]
     Active Substance: SUMATRIPTAN SUCCINATE
     Dosage: 100 MG, 1 TABLET AS NEEDED ONE TIME ONCE A DAY
     Route: 048
  3. CYMBALTA [Concomitant]
     Active Substance: DULOXETINE HYDROCHLORIDE
     Dosage: 30 MG, 1 CAPSULE DAILY
     Route: 048
     Dates: start: 20161021
  4. PANTOPRAZOLE SODIUM. [Concomitant]
     Active Substance: PANTOPRAZOLE SODIUM
     Dosage: 40 MG, 1 TABLET ONCE A DAY
     Route: 048
     Dates: start: 20160329
  5. ACETAMINOPHEN AND CODEINE [Concomitant]
     Active Substance: ACETAMINOPHEN\CODEINE PHOSPHATE
     Dosage: 1 DF, 1 TABLET AS NEEDED EVERY 8 HOURS AS NEEDED
     Route: 048
     Dates: start: 20170118
  6. CLONIDINE HCL [Concomitant]
     Active Substance: CLONIDINE HYDROCHLORIDE
     Dosage: 0.1 MG, 1 TABLET ONE HOUR BEFORE PROCEDURE
     Route: 048
  7. LYRICA [Suspect]
     Active Substance: PREGABALIN
     Indication: SPINAL OSTEOARTHRITIS
     Dosage: 75 MG, THREE TIMES A DAY
     Route: 048
     Dates: start: 2007
  8. CYMBALTA [Concomitant]
     Active Substance: DULOXETINE HYDROCHLORIDE
     Dosage: 60 MG, 1 CAPSULE ONCE A DAY AFTER 30 MG CAPSULES ARE FINISHED
     Dates: start: 20161021
  9. ALBUTEROL SULFATE. [Concomitant]
     Active Substance: ALBUTEROL SULFATE
     Dosage: 3 ML, 3X/DAY
  10. KETOROLAC TROMETHAMINE. [Concomitant]
     Active Substance: KETOROLAC TROMETHAMINE
     Dosage: 10 MG, 1 TABLET WITH FOOD OR MILK AS NEEDED EVERY 8 HRS
     Route: 048
     Dates: start: 20170118
  11. LYRICA [Suspect]
     Active Substance: PREGABALIN
     Indication: LIMB DISCOMFORT
  12. TRAZODONE HYDROCHLORIDE. [Concomitant]
     Active Substance: TRAZODONE HYDROCHLORIDE
     Dosage: 100 MG, 1X/DAY
     Route: 048
     Dates: start: 2002
  13. SPIRIVA [Concomitant]
     Active Substance: TIOTROPIUM BROMIDE MONOHYDRATE
     Dosage: 18 UG, 1X/DAY(1 CAPSULE INHALATION ONCE A DAY)
     Route: 055
     Dates: start: 20170507
  14. ATROVENT HFA [Concomitant]
     Active Substance: IPRATROPIUM BROMIDE
     Dosage: UNK, 2 PUFFS INHALATION FOUR TIMES A DAY
     Dates: start: 20170324
  15. TIZANIDINE. [Concomitant]
     Active Substance: TIZANIDINE
     Indication: MUSCLE RELAXANT THERAPY
     Dosage: 4 MG, 1 TABLET AS NEEDED THREE TIMES A DAY
     Route: 048
     Dates: start: 20161121
  16. TOPAMAX [Concomitant]
     Active Substance: TOPIRAMATE
     Dosage: 25 MG, 1 TABLET AT BEDTIME ONCE A DAY
     Route: 048
  17. DIPHENHYDRAMINE HCL [Concomitant]
     Active Substance: DIPHENHYDRAMINE HYDROCHLORIDE
     Dosage: 2 CAPSULES WITH TRAMADOL ORALLY TID AS NEEDED
     Route: 048
     Dates: start: 20121023
  18. PROAIR HFA [Concomitant]
     Active Substance: ALBUTEROL SULFATE
     Dosage: 2 PUFFS AS NEEDED INHALATION EVERY 4 HOURS AS NEEDED
     Route: 055
     Dates: start: 20141218
  19. CYCLOBENZAPRINE HCL [Concomitant]
     Active Substance: CYCLOBENZAPRINE HYDROCHLORIDE
     Dosage: 10 MG, 1 TABLET AT BEDTIME IF NEEDED
     Route: 048
  20. ASPIRIN 81 [Concomitant]
     Active Substance: ASPIRIN
     Dosage: 81 MG, 1 TABLET ONCE A DAY
     Route: 048
  21. ATORVASTATIN CALCIUM. [Concomitant]
     Active Substance: ATORVASTATIN CALCIUM
     Dosage: 40 MG, 1 TABLET ONCE A DAY
     Route: 048
     Dates: start: 20150201
  22. OMEPRAZOLE MAGNESIUM. [Concomitant]
     Active Substance: OMEPRAZOLE MAGNESIUM
     Dosage: 20 MG, 1 TABLET ORALLY MINS BEFORE FIRST MEAL OF THE DAY
     Route: 048
     Dates: start: 20170323
  23. LYRICA [Suspect]
     Active Substance: PREGABALIN
     Indication: HYPOAESTHESIA
  24. TRAZODONE HYDROCHLORIDE. [Concomitant]
     Active Substance: TRAZODONE HYDROCHLORIDE
     Indication: SLEEP DISORDER
     Dosage: 100 MG, 1 TABLET EVERY NIGHT AT BEDTIME AS NEEDED
     Route: 048
     Dates: start: 2002
  25. IBUPROFEN. [Concomitant]
     Active Substance: IBUPROFEN
     Indication: BACK PAIN
     Dosage: 600 MG, 1 TABLET, TWICE DAILY WITH FOOD
     Route: 048
  26. GABAPENTIN. [Concomitant]
     Active Substance: GABAPENTIN
     Dosage: 600 MG, 1 TABLET THREE TIMES DAILY
     Route: 048
  27. PREDNISONE. [Concomitant]
     Active Substance: PREDNISONE
     Dosage: UNK, (3 TABLET DAILY ONE WEEK; 2 TAB DAILY WEEK 2; 1 TAB DAILY WEEK 3 ONCE A DAY)
     Route: 048
     Dates: start: 20160920
  28. LORATADINE. [Concomitant]
     Active Substance: LORATADINE
     Dosage: 10 MG, ONCE A DAY
     Route: 048
     Dates: start: 20170316
  29. CYMBALTA [Concomitant]
     Active Substance: DULOXETINE HYDROCHLORIDE
     Dosage: 30 MG, 1 CAPSULE DAILY
     Route: 048
  30. ATORVASTATIN CALCIUM. [Concomitant]
     Active Substance: ATORVASTATIN CALCIUM
     Dosage: 20 MG, 1 TABLET ONCE A DAY
     Route: 048
     Dates: start: 20160202
  31. SYMBICORT [Concomitant]
     Active Substance: BUDESONIDE\FORMOTEROL FUMARATE DIHYDRATE
     Dosage: 2 PUFFS INHALATION TWICE A DAY
     Route: 055

REACTIONS (2)
  - Product use in unapproved indication [Unknown]
  - Pruritus [Unknown]

NARRATIVE: CASE EVENT DATE: 2007
